FAERS Safety Report 4726874-2 (Version None)
Quarter: 2005Q3

REPORT INFORMATION
  Report Type: 
  Country: None (occurrence: None)
  Receive Date: 20050726
  Receipt Date: 20050712
  Transmission Date: 20060218
  Serious: Yes (Other)
  Sender: FDA-Public Use
  Company Number: WAES 0504USA01314

PATIENT
  Age: 72 Year
  Sex: Male

DRUGS (12)
  1. FOSAMAX [Suspect]
     Indication: OSTEOPOROSIS
     Dosage: 5 MG DAILY; PO
     Route: 048
     Dates: start: 20040114, end: 20041015
  2. PREDNISOLONE [Suspect]
     Indication: LEUKOCYTOCLASTIC VASCULITIS
     Dosage: 5-50 DAILY; PO
     Route: 048
     Dates: start: 20030726
  3. PREDNISOLONE [Suspect]
     Indication: PACHYMENINGITIS
     Dosage: 5-50 DAILY; PO
     Route: 048
     Dates: start: 20030726
  4. SOLU-MEDROL                 (METHYLPREDNISOLONE SODIUM SUC [Suspect]
     Indication: PACHYMENINGITIS
     Dosage: 500 MG DAILY DOSE #16; IV
     Route: 042
     Dates: start: 20031218, end: 20040118
  5. DECADRON [Suspect]
     Indication: PACHYMENINGITIS
     Dosage: 8-16 MG DAILY; IM, 8-12 MG DAILY; IM
     Route: 030
     Dates: start: 20040122, end: 20040311
  6. DECADRON [Suspect]
     Indication: PACHYMENINGITIS
     Dosage: 8-16 MG DAILY; IM, 8-12 MG DAILY; IM
     Route: 030
     Dates: start: 20040525, end: 20040622
  7. ALFAROL [Concomitant]
  8. IMURAN [Concomitant]
  9. RIFADIN [Concomitant]
  10. THYRADIN-S [Concomitant]
  11. CLARITHROMYCIN [Concomitant]
  12. PYRAZINAMIDE [Concomitant]

REACTIONS (10)
  - CHRONIC SINUSITIS [None]
  - COUGH [None]
  - DEAFNESS [None]
  - MUSCULAR WEAKNESS [None]
  - OTITIS MEDIA [None]
  - PACHYMENINGITIS [None]
  - PYREXIA [None]
  - RESPIRATORY TRACT INFECTION [None]
  - STRIDOR [None]
  - THROMBOCYTOPENIA [None]
